FAERS Safety Report 23450469 (Version 4)
Quarter: 2025Q2

REPORT INFORMATION
  Report Type: Spontaneous
  Country: US (occurrence: US)
  Receive Date: 20240129
  Receipt Date: 20250519
  Transmission Date: 20250717
  Serious: No
  Sender: BIOGEN
  Company Number: US-BIOGEN-2024BI01247129

PATIENT
  Sex: Female

DRUGS (1)
  1. PLEGRIDY [Suspect]
     Active Substance: PEGINTERFERON BETA-1A
     Indication: Multiple sclerosis
     Route: 050
     Dates: start: 20150127, end: 202501

REACTIONS (6)
  - Visual acuity reduced [Unknown]
  - Musculoskeletal disorder [Unknown]
  - Cataract [Unknown]
  - Glaucoma [Unknown]
  - Memory impairment [Unknown]
  - Asthenia [Unknown]
